FAERS Safety Report 5441722-3 (Version None)
Quarter: 2007Q3

REPORT INFORMATION
  Report Type: 
  Country: None (occurrence: None)
  Receive Date: 20070829
  Receipt Date: 20070814
  Transmission Date: 20080115
  Serious: Yes (Hospitalization, Other)
  Sender: FDA-Public Use
  Company Number: ENT 2007-0089

PATIENT
  Sex: Female

DRUGS (8)
  1. COMTAN [Suspect]
     Indication: PARKINSON'S DISEASE
     Dosage: 400 MG (100 MG, 4 IN 1 D) ORAL ; 400 MG (100 MG, 4 IN 1 D) ORAL
     Route: 048
     Dates: start: 20070501, end: 20070501
  2. COMTAN [Suspect]
     Indication: PARKINSON'S DISEASE
     Dosage: 400 MG (100 MG, 4 IN 1 D) ORAL ; 400 MG (100 MG, 4 IN 1 D) ORAL
     Route: 048
     Dates: start: 20070519
  3. DEPAS [Concomitant]
  4. FP (SELEGILINE) [Concomitant]
  5. NEO DOPASTON [Concomitant]
  6. CABERGOLINE [Concomitant]
  7. RETICOLAN [Concomitant]
  8. SELBEX [Concomitant]

REACTIONS (7)
  - EYE HAEMORRHAGE [None]
  - LYMPHOCYTE STIMULATION TEST POSITIVE [None]
  - PNEUMONIA [None]
  - RETINAL HAEMORRHAGE [None]
  - RHINALGIA [None]
  - RHINORRHOEA [None]
  - VITREOUS FLOATERS [None]
